FAERS Safety Report 20995619 (Version 1)
Quarter: 2022Q2

REPORT INFORMATION
  Report Type: Spontaneous
  Country: US (occurrence: US)
  Receive Date: 20220623
  Receipt Date: 20220623
  Transmission Date: 20220720
  Serious: No
  Sender: FDA-Public Use
  Company Number: US-Accord-231419

PATIENT
  Age: 75 Year

DRUGS (1)
  1. CLONAZEPAM [Suspect]
     Active Substance: CLONAZEPAM
     Indication: Product used for unknown indication
     Dosage: STRENGTH: 1MG

REACTIONS (14)
  - Fatigue [Unknown]
  - Anxiety [Unknown]
  - Feeling abnormal [Unknown]
  - Mood altered [Unknown]
  - Abdominal pain upper [Unknown]
  - Diarrhoea [Unknown]
  - Nausea [Unknown]
  - Insomnia [Unknown]
  - Heart rate increased [Unknown]
  - Vomiting [Unknown]
  - Hypertension [Unknown]
  - Ear congestion [Unknown]
  - Dizziness [Unknown]
  - Palpitations [Unknown]
